FAERS Safety Report 6171721-8 (Version None)
Quarter: 2009Q2

REPORT INFORMATION
  Report Type: 
  Country: None (occurrence: None)
  Receive Date: 20090429
  Receipt Date: 20090422
  Transmission Date: 20091009
  Serious: Yes (Death, Hospitalization)
  Sender: FDA-Public Use
  Company Number: B0570014A

PATIENT
  Age: 82 Year
  Sex: Male

DRUGS (14)
  1. CARVEDILOL [Suspect]
     Indication: CARDIAC FAILURE CHRONIC
     Dosage: 1.25MG PER DAY
     Route: 048
     Dates: start: 20081225, end: 20090310
  2. PAROXETINE HCL [Suspect]
     Indication: DEPRESSION
     Route: 048
     Dates: start: 20090117, end: 20090309
  3. SALMETEROL XINAFOATE [Suspect]
     Indication: EMPHYSEMA
     Dosage: 100UG PER DAY
     Route: 055
     Dates: start: 20081204, end: 20090310
  4. DIGOXIN [Suspect]
     Indication: ATRIAL FIBRILLATION
     Dosage: 125MG PER DAY
     Route: 048
     Dates: start: 20081222, end: 20090310
  5. DIAZEPAM [Suspect]
     Indication: DRUG USE FOR UNKNOWN INDICATION
     Dosage: 5MG PER DAY
     Route: 065
  6. SULPIRIDE [Suspect]
     Indication: DEPRESSION
     Dosage: 100MG PER DAY
     Route: 048
     Dates: start: 20081224, end: 20090310
  7. FRUSEMIDE [Suspect]
     Dosage: 20MG PER DAY
     Route: 048
     Dates: end: 20090310
  8. CLARITHROMYCIN [Suspect]
     Indication: ATRIAL FIBRILLATION
     Dosage: 1.25MG PER DAY
     Route: 048
     Dates: start: 20081222, end: 20090310
  9. THEOPHYLLINE [Suspect]
     Indication: EMPHYSEMA
     Dosage: 200MG PER DAY
     Route: 048
     Dates: end: 20090310
  10. VERPAMIL [Suspect]
     Indication: ARRHYTHMIA
     Dosage: 120MG PER DAY
     Route: 065
     Dates: end: 20090310
  11. TIOTROPIUM BROMIDE [Suspect]
     Indication: EMPHYSEMA
     Dosage: 10UG PER DAY
     Route: 055
     Dates: start: 20081204, end: 20090310
  12. DANTROLENE SODIUM [Concomitant]
     Route: 065
  13. SOLDEM [Concomitant]
     Route: 065
     Dates: start: 20090118, end: 20090310
  14. WARFARIN SODIUM [Concomitant]
     Route: 065
     Dates: start: 20081119, end: 20090310

REACTIONS (9)
  - CONVULSION [None]
  - DISSEMINATED INTRAVASCULAR COAGULATION [None]
  - HYPERTHERMIA [None]
  - MULTI-ORGAN FAILURE [None]
  - MUSCULOSKELETAL STIFFNESS [None]
  - NEUROLEPTIC MALIGNANT SYNDROME [None]
  - PYREXIA [None]
  - TACHYCARDIA [None]
  - TONIC CONVULSION [None]
